FAERS Safety Report 5192241-3 (Version None)
Quarter: 2006Q4

REPORT INFORMATION
  Report Type: 
  Country: None (occurrence: None)
  Receive Date: 20061227
  Receipt Date: 20061220
  Transmission Date: 20070319
  Serious: Yes (Disabling)
  Sender: FDA-Public Use
  Company Number: DE-ROCHE-476113

PATIENT
  Age: 74 Year
  Weight: 73 kg

DRUGS (8)
  1. KEVATRIL [Suspect]
     Indication: DRUG USE FOR UNKNOWN INDICATION
     Route: 065
  2. IRINOTECAN [Suspect]
     Route: 065
  3. TRENANTONE [Concomitant]
     Dosage: ROUTE WAS REPORTED AS 3 MONTHS DEPOT SYRINGE.
  4. CASODEX [Concomitant]
  5. OXALIPLATIN [Concomitant]
     Dosage: REPORTED AS STRENGTH WAS 135 MG.
  6. FOLINIC ACID [Concomitant]
  7. FLUOROURACIL [Concomitant]
  8. DEXAMETHASONE [Concomitant]

REACTIONS (1)
  - PULMONARY FIBROSIS [None]
